FAERS Safety Report 13257531 (Version 1)
Quarter: 2017Q1

REPORT INFORMATION
  Report Type: Spontaneous
  Country: US (occurrence: US)
  Receive Date: 20170221
  Receipt Date: 20170221
  Transmission Date: 20170428
  Serious: No
  Sender: FDA-Public Use
  Company Number: US-PHARMA_RESEARCH_SOFTWARE_SOLUTION-USA-POI0580201600109

PATIENT
  Age: 65 Year
  Sex: Female
  Weight: 113.5 kg

DRUGS (2)
  1. POTASSIUM CHLORIDE FOR ORAL SOLUTION [Suspect]
     Active Substance: POTASSIUM CHLORIDE
     Dates: start: 20161017
  2. PREDNISONE. [Suspect]
     Active Substance: PREDNISONE

REACTIONS (1)
  - Blood glucose increased [Not Recovered/Not Resolved]

NARRATIVE: CASE EVENT DATE: 20161017
